FAERS Safety Report 10095761 (Version 1)
Quarter: 2014Q2

REPORT INFORMATION
  Report Type: Spontaneous
  Country: US (occurrence: US)
  Receive Date: 20140422
  Receipt Date: 20140422
  Transmission Date: 20141212
  Serious: No
  Sender: FDA-Public Use
  Company Number: US-GILEAD-2013-0073751

PATIENT
  Sex: Female

DRUGS (3)
  1. LETAIRIS [Suspect]
     Indication: PRODUCT USED FOR UNKNOWN INDICATION
     Dosage: 5 MG, QD
     Route: 048
     Dates: start: 20130326
  2. COUMADIN                           /00014802/ [Concomitant]
  3. REVATIO [Concomitant]

REACTIONS (3)
  - Insomnia [Unknown]
  - Dyspnoea [Unknown]
  - Fatigue [Unknown]
